FAERS Safety Report 6413629-6 (Version None)
Quarter: 2009Q4

REPORT INFORMATION
  Report Type: 
  Country: None (occurrence: None)
  Receive Date: 20091023
  Receipt Date: 20091023
  Transmission Date: 20100525
  Serious: Yes (Life-Threatening, Hospitalization)
  Sender: FDA-Public Use
  Company Number: None

PATIENT
  Sex: Female
  Weight: 83.9154 kg

DRUGS (2)
  1. YAZ [Suspect]
     Indication: DYSMENORRHOEA
     Dosage: 1 PILL DAILY OTHER
     Route: 048
     Dates: start: 20080701, end: 20080904
  2. YAZ [Suspect]
     Indication: HAEMORRHAGE
     Dosage: 1 PILL DAILY OTHER
     Route: 048
     Dates: start: 20080701, end: 20080904

REACTIONS (2)
  - FLANK PAIN [None]
  - PULMONARY EMBOLISM [None]
